FAERS Safety Report 9100981 (Version 1)
Quarter: 2013Q1

REPORT INFORMATION
  Report Type: Spontaneous
  Country: US (occurrence: None)
  Receive Date: 20130220
  Receipt Date: 20130220
  Transmission Date: 20140127
  Serious: Yes (Life-Threatening, Hospitalization, Other)
  Sender: FDA-Public Use
  Company Number: None

PATIENT
  Age: 37 Year
  Sex: Male
  Weight: 100.7 kg

DRUGS (5)
  1. RISPERIDONE 1MG TABLET RITEAID [Suspect]
  2. RISPERIDONE/RISPERIDOL [Concomitant]
  3. PALPIDONE/INVEGA SUSTENNA [Concomitant]
  4. ABILIFY/APRIPRIZOL [Concomitant]
  5. GEODON/ZIPRAZIDONE [Concomitant]

REACTIONS (16)
  - Drug withdrawal syndrome [None]
  - Nausea [None]
  - Weight increased [None]
  - Muscle spasms [None]
  - Haematochezia [None]
  - Depression [None]
  - Anxiety [None]
  - Convulsion [None]
  - Nerve compression [None]
  - Muscle rigidity [None]
  - Epistaxis [None]
  - Pollakiuria [None]
  - Suicidal behaviour [None]
  - Arrhythmia [None]
  - Dyskinesia [None]
  - Legal problem [None]
